FAERS Safety Report 10722357 (Version 1)
Quarter: 2015Q1

REPORT INFORMATION
  Report Type: Report from Study
  Country: DE (occurrence: DE)
  Receive Date: 20150119
  Receipt Date: 20150119
  Transmission Date: 20150721
  Serious: Yes (Hospitalization)
  Sender: FDA-Public Use
  Company Number: DE-ABBVIE-14P-062-1320057-00

PATIENT
  Sex: Female

DRUGS (2)
  1. DUODOPA [Suspect]
     Active Substance: CARBIDOPA\LEVODOPA
     Indication: PARKINSON^S DISEASE
     Dosage: MD: 3.4 MLCRD: 3.4 ML/HCRN: 2.8 ML/HED: 2.0 ML
     Route: 050
     Dates: start: 20120118, end: 2014
  2. DUODOPA [Suspect]
     Active Substance: CARBIDOPA\LEVODOPA
     Route: 050
     Dates: start: 2014

REACTIONS (5)
  - Device dislocation [Unknown]
  - Stoma site erythema [Unknown]
  - Catheter site discharge [Unknown]
  - Stoma site inflammation [Not Recovered/Not Resolved]
  - General physical health deterioration [Unknown]
